FAERS Safety Report 10414302 (Version 3)
Quarter: 2014Q3

REPORT INFORMATION
  Report Type: Spontaneous
  Country: US (occurrence: US)
  Receive Date: 20140828
  Receipt Date: 20140913
  Transmission Date: 20150326
  Serious: Yes (Hospitalization, Other)
  Sender: FDA-Public Use
  Company Number: US-ABBVIE-14K-163-1274704-00

PATIENT
  Age: 55 Year
  Sex: Female
  Weight: 93.07 kg

DRUGS (20)
  1. HUMIRA [Suspect]
     Active Substance: ADALIMUMAB
     Indication: PSORIASIS
  2. DULOXETINE [Concomitant]
     Active Substance: DULOXETINE
     Indication: PAIN
  3. TRAMADOL [Concomitant]
     Active Substance: TRAMADOL
     Indication: PAIN
  4. ATORVASTATIN [Concomitant]
     Active Substance: ATORVASTATIN
     Indication: BLOOD CHOLESTEROL INCREASED
  5. FISH OIL [Concomitant]
     Active Substance: FISH OIL
     Indication: NUTRITIONAL SUPPLEMENTATION
  6. MULTIVITAMIN [Concomitant]
     Active Substance: VITAMINS
     Indication: VITAMIN SUPPLEMENTATION
  7. ASPIRIN. [Concomitant]
     Active Substance: ASPIRIN
     Indication: PRODUCT USED FOR UNKNOWN INDICATION
  8. FLAXSEED [Concomitant]
     Active Substance: FLAX SEED
     Indication: NUTRITIONAL SUPPLEMENTATION
  9. CINNAMON. [Concomitant]
     Active Substance: CINNAMON
     Indication: NUTRITIONAL SUPPLEMENTATION
  10. ZINC [Concomitant]
     Active Substance: ZINC\ZINC CHLORIDE
     Indication: MINERAL SUPPLEMENTATION
  11. VITAMIN D [Concomitant]
     Active Substance: CHOLECALCIFEROL
     Indication: VITAMIN SUPPLEMENTATION
  12. BUPROPION [Concomitant]
     Active Substance: BUPROPION
     Indication: DEPRESSION
  13. GABAPENTIN. [Concomitant]
     Active Substance: GABAPENTIN
     Indication: PSORIATIC ARTHROPATHY
  14. HUMIRA [Suspect]
     Active Substance: ADALIMUMAB
     Dates: start: 2013
  15. STELARA [Suspect]
     Active Substance: USTEKINUMAB
     Indication: PSORIASIS
  16. DULOXETINE [Concomitant]
     Active Substance: DULOXETINE
     Indication: DEPRESSION
  17. FOLIC ACID. [Concomitant]
     Active Substance: FOLIC ACID
     Indication: PRODUCT USED FOR UNKNOWN INDICATION
  18. CALCIUM [Concomitant]
     Active Substance: CALCIUM
     Indication: MINERAL SUPPLEMENTATION
  19. HUMIRA [Suspect]
     Active Substance: ADALIMUMAB
     Indication: PSORIATIC ARTHROPATHY
     Dates: end: 2012
  20. GABAPENTIN. [Concomitant]
     Active Substance: GABAPENTIN
     Indication: FIBROMYALGIA

REACTIONS (10)
  - Hepatic enzyme increased [Unknown]
  - Blood cholesterol increased [Unknown]
  - Cholelithiasis [Recovered/Resolved]
  - Cholecystitis infective [Recovered/Resolved]
  - Psoriasis [Unknown]
  - Type 2 diabetes mellitus [Not Recovered/Not Resolved]
  - Drug ineffective [Not Recovered/Not Resolved]
  - Peritonitis [Recovered/Resolved]
  - Cholecystitis [Recovered/Resolved]
  - Blood glucose increased [Not Recovered/Not Resolved]

NARRATIVE: CASE EVENT DATE: 201308
